FAERS Safety Report 6460458-3 (Version None)
Quarter: 2009Q4

REPORT INFORMATION
  Report Type: 
  Country: None (occurrence: None)
  Receive Date: 20091130
  Receipt Date: 20091123
  Transmission Date: 20100525
  Serious: Yes (Congenital Anomaly, Other)
  Sender: FDA-Public Use
  Company Number: DE-ASTRAZENECA-2009SE28136

PATIENT

DRUGS (1)
  1. CANDESARTAN CILEXETIL [Suspect]
     Route: 064

REACTIONS (4)
  - FOETAL GROWTH RETARDATION [None]
  - PREMATURE BABY [None]
  - RENAL FAILURE [None]
  - SKULL MALFORMATION [None]
